FAERS Safety Report 12504281 (Version 1)
Quarter: 2016Q2

REPORT INFORMATION
  Report Type: Spontaneous
  Country: US (occurrence: None)
  Receive Date: 20160627
  Receipt Date: 20160627
  Transmission Date: 20160815
  Serious: Yes (Death)
  Sender: FDA-Public Use
  Company Number: None

PATIENT
  Age: 54 Year
  Sex: Male

DRUGS (9)
  1. VALIUM [Concomitant]
     Active Substance: DIAZEPAM
  2. LOPRESSOR [Concomitant]
     Active Substance: METOPROLOL TARTRATE
  3. MAGOX [Concomitant]
  4. ATOVAQUONE 750MG/5ML SUSP AMNEAL [Suspect]
     Active Substance: ATOVAQUONE
     Indication: NEOPLASM MALIGNANT
     Route: 048
     Dates: start: 20160511, end: 20160613
  5. FLOMAX [Concomitant]
     Active Substance: TAMSULOSIN HYDROCHLORIDE
  6. TRIAMCINOLONE [Concomitant]
     Active Substance: TRIAMCINOLONE
  7. ACYCLOVIR. [Concomitant]
     Active Substance: ACYCLOVIR
  8. PROBENECID. [Concomitant]
     Active Substance: PROBENECID
  9. PAMELOR [Concomitant]
     Active Substance: NORTRIPTYLINE HYDROCHLORIDE

REACTIONS (1)
  - Death [None]

NARRATIVE: CASE EVENT DATE: 20160613
